FAERS Safety Report 14405254 (Version 1)
Quarter: 2018Q1

REPORT INFORMATION
  Report Type: Report from Study
  Country: ES (occurrence: ES)
  Receive Date: 20180118
  Receipt Date: 20180118
  Transmission Date: 20180509
  Serious: Yes (Other)
  Sender: FDA-Public Use
  Company Number: ES-CIPLA LTD.-2018ES01218

PATIENT

DRUGS (2)
  1. OLANZAPINE. [Suspect]
     Active Substance: OLANZAPINE
     Indication: BIPOLAR I DISORDER
     Dosage: 10 MG, PER DAY
     Route: 048
  2. RISPERIDONE. [Concomitant]
     Active Substance: RISPERIDONE
     Indication: BIPOLAR I DISORDER
     Dosage: UNK, 25-50 MG, EVERY TWO WEEKS FOR 12-WEEKS
     Route: 065

REACTIONS (1)
  - Disease recurrence [Unknown]
